FAERS Safety Report 7236413-2 (Version None)
Quarter: 2011Q1

REPORT INFORMATION
  Report Type: 
  Country: None (occurrence: None)
  Receive Date: 20110120
  Receipt Date: 20110110
  Transmission Date: 20110831
  Serious: Yes (Hospitalization, Other)
  Sender: FDA-Public Use
  Company Number: CN-NOVOPROD-321473

PATIENT
  Age: 55 Year
  Sex: Female

DRUGS (12)
  1. NOVOMIX 30 [Suspect]
     Indication: DIABETES MELLITUS
     Dosage: 30 U, BID
  2. ESTAZOLAM [Concomitant]
     Indication: SLEEP DISORDER THERAPY
     Dosage: UNK
  3. NOVORAPID [Suspect]
     Indication: DIABETES MELLITUS
     Dosage: 6U+6U+5.2U BOLUS, 38.9U BASAL (MAXIMUM)
     Route: 058
  4. LEVEMIR [Suspect]
     Dosage: 12U AT BED TIME
     Route: 058
  5. MECOBALAMIN [Concomitant]
     Indication: PRODUCT USED FOR UNKNOWN INDICATION
     Dosage: UNK
  6. VITAMIIN C [Concomitant]
     Indication: LIVER DISORDER
     Dosage: UNK
  7. ASPIRIN [Concomitant]
     Indication: ANTIPLATELET THERAPY
     Dosage: UNK
  8. SIMVASTATIN [Concomitant]
     Indication: BLOOD CHOLESTEROL INCREASED
     Dosage: UNK
  9. LEVEMIR [Suspect]
     Dosage: 4U AT BED TIME
     Route: 058
  10. NOVORAPID [Suspect]
     Dosage: 6U+6U+7U BOLUS
     Route: 058
  11. NOVORAPID [Suspect]
     Dosage: 1U+1U+1U BOLUS
     Route: 058
  12. VITAMIN B1 TAB [Concomitant]
     Indication: PRODUCT USED FOR UNKNOWN INDICATION
     Dosage: UNK

REACTIONS (3)
  - BLOOD PRESSURE DECREASED [None]
  - BLOOD GLUCOSE DECREASED [None]
  - DIABETES MELLITUS INADEQUATE CONTROL [None]
